FAERS Safety Report 4877808-1 (Version None)
Quarter: 2006Q1

REPORT INFORMATION
  Report Type: 
  Country: None (occurrence: None)
  Receive Date: 20060109
  Receipt Date: 20051227
  Transmission Date: 20060701
  Serious: Yes (Other)
  Sender: FDA-Public Use
  Company Number: 2006000296

PATIENT
  Sex: Male
  Weight: 68.0396 kg

DRUGS (4)
  1. VIAGRA [Suspect]
     Indication: ERECTILE DYSFUNCTION
     Dosage: (100 MG, AS NECESSARY), ORAL
     Route: 048
     Dates: start: 19990101
  2. DETROL LA [Suspect]
     Indication: NOCTURIA
     Dosage: (4 MG)
     Dates: start: 20040101
  3. PROCARDIA XL [Suspect]
     Indication: PERIPHERAL VASCULAR DISORDER
     Dates: start: 20050101
  4. SAW PALMETTO (SAW PALMETTO) [Concomitant]

REACTIONS (7)
  - BLOOD CHOLESTEROL INCREASED [None]
  - CARDIOVASCULAR DISORDER [None]
  - HEART RATE INCREASED [None]
  - LIPOMA [None]
  - NERVOUSNESS [None]
  - NOCTURIA [None]
  - WRONG TECHNIQUE IN DRUG USAGE PROCESS [None]
